FAERS Safety Report 9523245 (Version 1)
Quarter: 2013Q3

REPORT INFORMATION
  Report Type: Spontaneous
  Country: IN (occurrence: IN)
  Receive Date: 20130913
  Receipt Date: 20130913
  Transmission Date: 20140515
  Serious: Yes (Hospitalization)
  Sender: FDA-Public Use
  Company Number: IN-ROCHE-1274604

PATIENT
  Age: 47 Year
  Sex: Female

DRUGS (1)
  1. LUCENTIS [Suspect]
     Indication: VISUAL ACUITY REDUCED
     Route: 050
     Dates: start: 20130902

REACTIONS (1)
  - Blood pressure increased [Recovered/Resolved]
